FAERS Safety Report 8204124-2 (Version None)
Quarter: 2012Q1

REPORT INFORMATION
  Report Type: 
  Country: None (occurrence: None)
  Receive Date: 20120309
  Receipt Date: 20120305
  Transmission Date: 20120608
  Serious: No
  Sender: FDA-Public Use
  Company Number: C-12-017

PATIENT
  Age: 53 Year
  Sex: Male
  Weight: 93.8946 kg

DRUGS (3)
  1. ENOXAPARIN [Concomitant]
  2. AMITRIPTYLINE HCL [Concomitant]
  3. OXYCODONE HCL [Suspect]
     Indication: PAIN
     Dosage: 10-30MG-Q4-6H-ORAL
     Route: 048
     Dates: start: 20120215, end: 20120218

REACTIONS (6)
  - DYSARTHRIA [None]
  - DYSPEPSIA [None]
  - RASH [None]
  - ACCIDENTAL OVERDOSE [None]
  - PRURITUS [None]
  - CONSTIPATION [None]
